FAERS Safety Report 21399695 (Version 2)
Quarter: 2022Q4

REPORT INFORMATION
  Report Type: Report from Study
  Country: IL (occurrence: IL)
  Receive Date: 20221001
  Receipt Date: 20221130
  Transmission Date: 20230113
  Serious: Yes (Hospitalization)
  Sender: FDA-Public Use
  Company Number: IL-ABBVIE-21K-082-3973212-00

PATIENT
  Age: 33 Year
  Sex: Female
  Weight: 90 kg

DRUGS (13)
  1. ORILISSA [Suspect]
     Active Substance: ELAGOLIX SODIUM
     Indication: Endometriosis
     Dosage: MODIFICATION TO THE DAILY DOSE
     Route: 048
     Dates: start: 20210322, end: 20210805
  2. ORILISSA [Suspect]
     Active Substance: ELAGOLIX SODIUM
     Indication: Endometriosis
     Route: 048
     Dates: start: 2021, end: 2021
  3. ORILISSA [Suspect]
     Active Substance: ELAGOLIX SODIUM
     Indication: Endometriosis
     Route: 048
     Dates: start: 20210806
  4. EUTHYROX [Concomitant]
     Active Substance: LEVOTHYROXINE SODIUM
     Indication: Hypothyroidism
     Dates: start: 20120101
  5. SOLUMENDROL injection [Concomitant]
     Indication: Hypersensitivity
     Dates: start: 20220707, end: 20220707
  6. DIENOGEST [Concomitant]
     Active Substance: DIENOGEST
     Indication: Endometriosis
     Dosage: DISCONTINUE SINCE PATIENT STARTED CYMBALTA.
     Dates: start: 201803, end: 20210806
  7. PHENERGAN [Concomitant]
     Active Substance: PROMETHAZINE HYDROCHLORIDE
     Indication: Hypersensitivity
     Dates: start: 20220825, end: 20220825
  8. V DALGIN [Concomitant]
     Indication: Endometriosis
     Dates: start: 202108
  9. HPA LANOLIN [Concomitant]
     Indication: Pruritus
     Dates: start: 20210822, end: 20220601
  10. HPA LANOLIN [Concomitant]
     Indication: Pruritus
     Dates: start: 20210822
  11. ACTIVELLE [Concomitant]
     Active Substance: ESTRADIOL\NORETHINDRONE ACETATE
     Indication: Hormone replacement therapy
     Dates: start: 20210806
  12. ZALDIAR [Concomitant]
     Active Substance: ACETAMINOPHEN\TRAMADOL HYDROCHLORIDE
     Indication: Endometriosis
     Dosage: DISCONTINUED SINCE PATIENT STARTED CYMBALTA.
     Dates: start: 201803, end: 20210806
  13. CYANOCOBALAMIN\PYRIDOXINE HYDROCHLORIDE\THIAMINE [Concomitant]
     Active Substance: CYANOCOBALAMIN\PYRIDOXINE HYDROCHLORIDE\THIAMINE
     Indication: Endometriosis
     Dates: start: 20220317

REACTIONS (17)
  - Endometriosis [Recovered/Resolved]
  - Libido decreased [Not Recovered/Not Resolved]
  - Fatigue [Not Recovered/Not Resolved]
  - Oedema peripheral [Not Recovered/Not Resolved]
  - Hot flush [Not Recovered/Not Resolved]
  - Hypersensitivity [Recovered/Resolved]
  - Pain [Unknown]
  - Hypersensitivity [Recovered/Resolved]
  - Weight increased [Not Recovered/Not Resolved]
  - Affect lability [Recovered/Resolved]
  - Pruritus [Recovered/Resolved]
  - Haematoma [Not Recovered/Not Resolved]
  - Alopecia [Recovered/Resolved]
  - Dyspnoea [Recovered/Resolved]
  - Dyspnoea [Recovered/Resolved]
  - Swelling face [Recovered/Resolved]
  - Swelling face [Recovered/Resolved]

NARRATIVE: CASE EVENT DATE: 20210101
